FAERS Safety Report 7471816-2 (Version None)
Quarter: 2011Q2

REPORT INFORMATION
  Report Type: 
  Country: None (occurrence: None)
  Receive Date: 20110511
  Receipt Date: 20100521
  Transmission Date: 20111010
  Serious: No
  Sender: FDA-Public Use
  Company Number: A0860840A

PATIENT
  Age: 49 Year
  Sex: Female

DRUGS (5)
  1. MARINOL [Concomitant]
  2. ATIVAN [Concomitant]
  3. ZOFRAN [Concomitant]
  4. TYKERB [Suspect]
     Dosage: 1250MG PER DAY
     Route: 048
     Dates: start: 20100520
  5. CARBOPLATIN [Concomitant]
     Route: 050

REACTIONS (2)
  - ABDOMINAL PAIN UPPER [None]
  - MUSCLE SPASMS [None]
